FAERS Safety Report 4788428-1 (Version None)
Quarter: 2005Q4

REPORT INFORMATION
  Report Type: 
  Country: None (occurrence: None)
  Receive Date: 20051005
  Receipt Date: 20050915
  Transmission Date: 20060501
  Serious: Yes (Hospitalization, Other)
  Sender: FDA-Public Use
  Company Number: 200512669JP

PATIENT
  Age: 1 Year
  Sex: 0

DRUGS (1)
  1. GLYBURIDE [Suspect]
     Dosage: DOSE: 5TABLETS
     Route: 048

REACTIONS (3)
  - ACCIDENTAL DRUG INTAKE BY CHILD [None]
  - ACCIDENTAL EXPOSURE [None]
  - HYPOGLYCAEMIA [None]
